FAERS Safety Report 6388347-3 (Version None)
Quarter: 2009Q4

REPORT INFORMATION
  Report Type: 
  Country: None (occurrence: None)
  Receive Date: 20091005
  Receipt Date: 20090929
  Transmission Date: 20100525
  Serious: Yes (Other)
  Sender: FDA-Public Use
  Company Number: US-MERCK-0909USA02475

PATIENT
  Age: 51 Year
  Sex: Female
  Weight: 99 kg

DRUGS (8)
  1. SINGULAIR [Suspect]
     Indication: HYPERSENSITIVITY
     Route: 048
  2. SINGULAIR [Suspect]
     Route: 048
     Dates: start: 20080601
  3. SINGULAIR [Suspect]
     Indication: ASTHMA
     Route: 048
  4. SINGULAIR [Suspect]
     Route: 048
     Dates: start: 20080601
  5. ETODOLAC [Concomitant]
     Route: 065
  6. SYNTHROID [Concomitant]
     Route: 065
  7. AMLODIPINE [Concomitant]
     Route: 065
  8. BYSTOLIC [Concomitant]
     Route: 065

REACTIONS (3)
  - SUICIDAL IDEATION [None]
  - TERMINAL INSOMNIA [None]
  - WRONG TECHNIQUE IN DRUG USAGE PROCESS [None]
